FAERS Safety Report 5296743-0 (Version None)
Quarter: 2007Q2

REPORT INFORMATION
  Report Type: 
  Country: None (occurrence: None)
  Receive Date: 20070413
  Receipt Date: 20070402
  Transmission Date: 20071010
  Serious: Yes (Other)
  Sender: FDA-Public Use
  Company Number: US-PFIZER INC-2007026789

PATIENT
  Sex: Female
  Weight: 61.2 kg

DRUGS (11)
  1. NEURONTIN [Suspect]
     Indication: NERVOUSNESS
  2. SERTRALINE [Suspect]
     Indication: BIPOLAR I DISORDER
  3. SERTRALINE [Suspect]
     Indication: BIPOLAR DISORDER
  4. CHANTIX [Suspect]
     Indication: SMOKING CESSATION THERAPY
  5. GEODON [Suspect]
     Indication: NERVOUSNESS
  6. GABAPENTIN [Suspect]
     Indication: SCHIZOPHRENIA
  7. URECHOLINE [Concomitant]
  8. HYDROCODONE [Concomitant]
  9. DIAZEPAM [Concomitant]
  10. FUROSEMIDE [Concomitant]
  11. SPIRIVA [Concomitant]

REACTIONS (10)
  - ARTHRALGIA [None]
  - BLADDER DISORDER [None]
  - COLECTOMY [None]
  - GENERAL PHYSICAL HEALTH DETERIORATION [None]
  - HYPERPHAGIA [None]
  - MUSCULOSKELETAL STIFFNESS [None]
  - PAIN [None]
  - THORACIC OUTLET SYNDROME [None]
  - TREMOR [None]
  - WEIGHT INCREASED [None]
